FAERS Safety Report 5774278-6 (Version None)
Quarter: 2008Q2

REPORT INFORMATION
  Report Type: 
  Country: None (occurrence: None)
  Receive Date: 20080616
  Receipt Date: 20080605
  Transmission Date: 20081010
  Serious: Yes (Other)
  Sender: FDA-Public Use
  Company Number: US-JNJFOC-20080501872

PATIENT
  Sex: Male
  Weight: 70.1 kg

DRUGS (16)
  1. REMICADE [Suspect]
     Indication: COLITIS ULCERATIVE
     Route: 042
  2. REMICADE [Suspect]
     Indication: CROHN'S DISEASE
     Route: 042
  3. MESALAMINE [Concomitant]
  4. PREDNISONE TAB [Concomitant]
  5. MERCAPTOPURINE [Concomitant]
  6. VITAMINS [Concomitant]
  7. ROWASA [Concomitant]
  8. IRON SULFATETHIAMIN COMPOUND TAB [Concomitant]
  9. SOLU-MEDROL [Concomitant]
     Indication: PREMEDICATION
  10. BENADRYL [Concomitant]
     Indication: PREMEDICATION
     Route: 048
  11. APAP TAB [Concomitant]
     Indication: PREMEDICATION
  12. VALGANCICLOVIR HCL [Concomitant]
  13. CIPROFLOXACIN [Concomitant]
  14. THERAGRAN M [Concomitant]
  15. CARAFATE [Concomitant]
  16. NEXIUM [Concomitant]
     Route: 042

REACTIONS (2)
  - BLOOD COUNT ABNORMAL [None]
  - CYTOMEGALOVIRUS TEST POSITIVE [None]
